FAERS Safety Report 16930688 (Version 1)
Quarter: 2019Q4

REPORT INFORMATION
  Report Type: Spontaneous
  Country: US (occurrence: US)
  Receive Date: 20191017
  Receipt Date: 20191017
  Transmission Date: 20200122
  Serious: Yes (Life-Threatening)
  Sender: FDA-Public Use
  Company Number: US-JUBILANT CADISTA PHARMACEUTICALS-2019JUB00052

PATIENT
  Sex: Male
  Weight: 82.8 kg

DRUGS (8)
  1. PREDNISONE. [Suspect]
     Active Substance: PREDNISONE
     Dosage: 90 MG, ONCE
     Route: 048
     Dates: start: 20181219, end: 20181219
  2. PREDNISONE. [Suspect]
     Active Substance: PREDNISONE
     Dosage: 50 MG, 2X/DAY
     Route: 048
     Dates: start: 20181214, end: 20181218
  3. PREDNISONE. [Suspect]
     Active Substance: PREDNISONE
     Indication: GRAFT VERSUS HOST DISEASE
     Dosage: 65 MG, 2X/DAY
     Route: 048
     Dates: start: 20181206, end: 20181212
  4. PREDNISONE. [Suspect]
     Active Substance: PREDNISONE
     Dosage: 40 MG, 2X/DAY
     Route: 048
     Dates: start: 201812
  5. BECLOMETHASONE [Concomitant]
     Active Substance: BECLOMETHASONE
     Dosage: UNK
     Dates: start: 20181205
  6. INCB039110 (ITACITINIB) OR PLACEBO [Suspect]
     Active Substance: ITACITINIB
     Indication: GRAFT VERSUS HOST DISEASE
     Dosage: 200 MG, 1X/DAY
     Route: 048
     Dates: start: 20181128, end: 20181219
  7. ZARXIO [Concomitant]
     Active Substance: FILGRASTIM-SNDZ
     Dosage: UNK
     Dates: start: 20181213
  8. PREDNISONE. [Suspect]
     Active Substance: PREDNISONE
     Dosage: 115 MG, ONCE
     Route: 048
     Dates: start: 20181213, end: 20181213

REACTIONS (1)
  - Hyperglycaemia [Recovering/Resolving]

NARRATIVE: CASE EVENT DATE: 201812
